FAERS Safety Report 7538129-1 (Version None)
Quarter: 2011Q2

REPORT INFORMATION
  Report Type: 
  Country: None (occurrence: None)
  Receive Date: 20110609
  Receipt Date: 20020101
  Transmission Date: 20111010
  Serious: Yes (Other)
  Sender: FDA-Public Use
  Company Number: PHHO2002CA11044

PATIENT
  Sex: Female

DRUGS (5)
  1. SEREVENT [Concomitant]
     Dosage: 50 MG
  2. DIOVAN [Suspect]
  3. ATENOLOL [Concomitant]
     Dosage: 100 MG
  4. APO-FUROSEMIDE [Concomitant]
     Dosage: 40 MG
  5. GEN-FENOFIBRATE MICRO [Concomitant]

REACTIONS (3)
  - ARRHYTHMIA [None]
  - MYOCARDIAL INFARCTION [None]
  - CATHETERISATION CARDIAC [None]
